FAERS Safety Report 6447403-1 (Version None)
Quarter: 2009Q4

REPORT INFORMATION
  Report Type: 
  Country: None (occurrence: None)
  Receive Date: 20091119
  Receipt Date: 20091105
  Transmission Date: 20100525
  Serious: Yes (Hospitalization, Other)
  Sender: FDA-Public Use
  Company Number: US-ELI_LILLY_AND_COMPANY-US200911001587

PATIENT
  Age: 55 Year
  Sex: Male

DRUGS (1)
  1. EFFIENT [Suspect]
     Dosage: 60 MG, UNK
     Route: 048
     Dates: start: 20091104, end: 20091105

REACTIONS (2)
  - HAEMORRHAGE [None]
  - PERIPHERAL ARTERY ANEURYSM [None]
